FAERS Safety Report 19867653 (Version 6)
Quarter: 2022Q3

REPORT INFORMATION
  Report Type: Spontaneous
  Country: DE (occurrence: DE)
  Receive Date: 20210922
  Receipt Date: 20220809
  Transmission Date: 20221027
  Serious: Yes (Death, Hospitalization, Other)
  Sender: FDA-Public Use
  Company Number: DE-BOEHRINGERINGELHEIM-2021-BI-094671

PATIENT
  Age: 61 Year
  Sex: Female
  Weight: 71 kg

DRUGS (3)
  1. DOCETAXEL [Suspect]
     Active Substance: DOCETAXEL
     Indication: Lung adenocarcinoma
     Dosage: FORM OF ADMIN.: LIQUID; 75 MG / M2 BSA
     Route: 042
     Dates: start: 20210318, end: 20210408
  2. VALSARTAN [Suspect]
     Active Substance: VALSARTAN
     Indication: Product used for unknown indication
     Dosage: 160 MG, QD
     Route: 048
     Dates: end: 20210330
  3. NINTEDANIB [Suspect]
     Active Substance: NINTEDANIB
     Indication: Lung adenocarcinoma
     Dosage: 200 MG (DRUG_INTERVAL_DOSAGE_UNIT_NUMBER : 0.5 DRUG_INTERVAL_DOSAGE_DEFINITION : D)
     Route: 048
     Dates: start: 20210319, end: 20210429

REACTIONS (8)
  - Nausea [Fatal]
  - Dermatitis acneiform [Recovered/Resolved]
  - General physical health deterioration [Not Recovered/Not Resolved]
  - Drug-induced liver injury [Recovered/Resolved]
  - Constipation [Recovered/Resolved]
  - Fatigue [Not Recovered/Not Resolved]
  - Vomiting [Recovered/Resolved]
  - Incorrect route of product administration [Unknown]

NARRATIVE: CASE EVENT DATE: 20210528
